FAERS Safety Report 22947353 (Version 2)
Quarter: 2024Q1

REPORT INFORMATION
  Report Type: Spontaneous
  Country: US (occurrence: None)
  Receive Date: 20230915
  Receipt Date: 20240320
  Transmission Date: 20240410
  Serious: No
  Sender: FDA-Public Use
  Company Number: US-ROCHE-3383191

PATIENT
  Age: 80 Year
  Sex: Male

DRUGS (2)
  1. VABYSMO [Suspect]
     Active Substance: FARICIMAB\FARICIMAB-SVOA
     Indication: Neovascular age-related macular degeneration
     Dosage: ONE INJECTION IN LEFT EYE
     Route: 050
     Dates: start: 20230401
  2. EYLEA [Concomitant]
     Active Substance: AFLIBERCEPT
     Indication: Neovascular age-related macular degeneration
     Route: 050
     Dates: start: 2023

REACTIONS (2)
  - Drug ineffective [Unknown]
  - No adverse event [Unknown]
